FAERS Safety Report 22298926 (Version 1)
Quarter: 2023Q2

REPORT INFORMATION
  Report Type: Spontaneous
  Country: KR (occurrence: KR)
  Receive Date: 20230509
  Receipt Date: 20230509
  Transmission Date: 20230721
  Serious: Yes (Other)
  Sender: FDA-Public Use
  Company Number: KR-PFIZER INC-202300178123

PATIENT
  Age: 22 Month
  Sex: Male

DRUGS (3)
  1. VANCOMYCIN HYDROCHLORIDE [Suspect]
     Active Substance: VANCOMYCIN HYDROCHLORIDE
     Indication: Pneumonia pneumococcal
     Dosage: 50 MG/KG, DAILY
     Route: 042
  2. CEFOTAXIME [Concomitant]
     Active Substance: CEFOTAXIME SODIUM
     Indication: Pneumonia pneumococcal
     Dosage: 200 MG/KG, DAILY
     Route: 042
  3. ROXITHROMYCIN [Concomitant]
     Active Substance: ROXITHROMYCIN
     Indication: Pneumonia pneumococcal
     Dosage: 8 MG/KG, DAILY
     Route: 048

REACTIONS (2)
  - Pyrexia [Recovered/Resolved]
  - Drug hypersensitivity [Recovered/Resolved]
